FAERS Safety Report 25398068 (Version 1)
Quarter: 2025Q2

REPORT INFORMATION
  Report Type: Spontaneous
  Country: US (occurrence: US)
  Receive Date: 20250604
  Receipt Date: 20250604
  Transmission Date: 20250717
  Serious: No
  Sender: GALPHARM INTERNATIONAL
  Company Number: US-PERRIGO-25US003808

PATIENT
  Age: 66 Year
  Sex: Female
  Weight: 71.202 kg

DRUGS (4)
  1. MINOXIDIL [Suspect]
     Active Substance: MINOXIDIL
     Indication: Alopecia
     Route: 061
     Dates: start: 202410, end: 202411
  2. MINOXIDIL [Suspect]
     Active Substance: MINOXIDIL
     Route: 061
     Dates: start: 20250310, end: 20250323
  3. OMEPRAZOLE [Concomitant]
     Active Substance: OMEPRAZOLE
     Indication: Gastrooesophageal reflux disease
     Route: 065
  4. METROCREAM [Concomitant]
     Active Substance: METRONIDAZOLE
     Indication: Rosacea
     Route: 065

REACTIONS (6)
  - Application site dryness [Not Recovered/Not Resolved]
  - Dandruff [Recovered/Resolved]
  - Rash macular [Recovered/Resolved]
  - Seborrhoeic dermatitis [Recovered/Resolved]
  - Application site irritation [Recovered/Resolved]
  - Application site pruritus [Recovered/Resolved]

NARRATIVE: CASE EVENT DATE: 20241001
